FAERS Safety Report 15937362 (Version 1)
Quarter: 2019Q1

REPORT INFORMATION
  Report Type: Spontaneous
  Country: US (occurrence: US)
  Receive Date: 20190208
  Receipt Date: 20190208
  Transmission Date: 20190417
  Serious: Yes (Other)
  Sender: FDA-Public Use
  Company Number: US-TELIGENT, INC-IGIL20190064

PATIENT
  Age: 81 Year
  Sex: Female
  Weight: 53 kg

DRUGS (1)
  1. CEFTAZIDIME. [Suspect]
     Active Substance: CEFTAZIDIME
     Indication: BURKHOLDERIA PSEUDOMALLEI INFECTION
     Dosage: 2 GRAM
     Route: 042

REACTIONS (4)
  - Burkholderia pseudomallei infection [Recovered/Resolved]
  - Pneumonia [Recovered/Resolved]
  - Treatment failure [Recovered/Resolved]
  - Bacteraemia [Recovered/Resolved]
